FAERS Safety Report 6931321-6 (Version None)
Quarter: 2010Q3

REPORT INFORMATION
  Report Type: 
  Country: None (occurrence: None)
  Receive Date: 20100818
  Receipt Date: 20100804
  Transmission Date: 20110219
  Serious: Yes (Other)
  Sender: FDA-Public Use
  Company Number: PHHY2010JP51537

PATIENT
  Age: 58 Year
  Sex: Female

DRUGS (2)
  1. GLEEVEC [Suspect]
     Indication: GASTROINTESTINAL STROMAL TUMOUR
     Dosage: 400 MG DAILY
     Route: 048
  2. GLEEVEC [Suspect]
     Dosage: 400 MG DAILY
     Route: 048

REACTIONS (10)
  - ANAEMIA [None]
  - ASCITES [None]
  - DECREASED APPETITE [None]
  - DISEASE PROGRESSION [None]
  - GASTROINTESTINAL STROMAL TUMOUR [None]
  - INTRA-ABDOMINAL HAEMORRHAGE [None]
  - NEOPLASM RECURRENCE [None]
  - TUMOUR EXCISION [None]
  - TUMOUR HAEMORRHAGE [None]
  - VOMITING [None]
